FAERS Safety Report 4611537-4 (Version None)
Quarter: 2005Q2

REPORT INFORMATION
  Report Type: 
  Country: None (occurrence: None)
  Receive Date: 20050311
  Receipt Date: 20041230
  Transmission Date: 20051028
  Serious: No
  Sender: FDA-Public Use
  Company Number: 2004-BP-05542BP

PATIENT
  Age: 71 Year
  Sex: Female
  Weight: 76.7 kg

DRUGS (6)
  1. SPIRIVA [Suspect]
     Indication: CHRONIC OBSTRUCTIVE PULMONARY DISEASE
     Dosage: 18 MCG (18 MCG, QD), IH
     Route: 055
     Dates: end: 20040701
  2. ADVAIR DISKUS 100/50 [Concomitant]
  3. LANOXIN [Concomitant]
  4. VITAMINS (VITAMINS) [Concomitant]
  5. ESTRADIOL [Concomitant]
  6. NASONEX [Concomitant]

REACTIONS (3)
  - EYE IRRITATION [None]
  - OCULAR DISCOMFORT [None]
  - VISION BLURRED [None]
